FAERS Safety Report 12976930 (Version 1)
Quarter: 2016Q4

REPORT INFORMATION
  Report Type: Spontaneous
  Country: JP (occurrence: JP)
  Receive Date: 20161128
  Receipt Date: 20161128
  Transmission Date: 20170207
  Serious: Yes (Death, Other)
  Sender: FDA-Public Use
  Company Number: JP-CIPLA LTD.-2016JP21840

PATIENT

DRUGS (3)
  1. PACLITAXEL. [Suspect]
     Active Substance: PACLITAXEL
     Indication: VULVAL CANCER METASTATIC
     Dosage: UNK
     Route: 065
  2. CISPLATIN. [Suspect]
     Active Substance: CISPLATIN
     Indication: PROPHYLACTIC CHEMOTHERAPY
     Dosage: 40 MG/M2, FOR FIVE CYCLES
     Route: 065
  3. CARBOPLATIN. [Suspect]
     Active Substance: CARBOPLATIN
     Indication: VULVAL CANCER METASTATIC
     Dosage: UNK
     Route: 065

REACTIONS (2)
  - Metastasis [Unknown]
  - Disease progression [Fatal]
